FAERS Safety Report 15165787 (Version 1)
Quarter: 2018Q3

REPORT INFORMATION
  Report Type: Spontaneous
  Country: ZA (occurrence: ZA)
  Receive Date: 20180719
  Receipt Date: 20180719
  Transmission Date: 20181010
  Serious: Yes (Other)
  Sender: FDA-Public Use
  Company Number: ZA-PFIZER INC-2018290447

PATIENT
  Age: 81 Year
  Sex: Female

DRUGS (9)
  1. DISPRIN [Suspect]
     Active Substance: ASPIRIN
     Dosage: 300 MG, UNK
  2. FUROSEMIDA MYLAN [Suspect]
     Active Substance: FUROSEMIDE
     Dosage: 40 MG, UNK
  3. ELTROXIN [Suspect]
     Active Substance: LEVOTHYROXINE
     Dosage: 50 UG, UNK
  4. VENLOR [Suspect]
     Active Substance: VENLAFAXINE HYDROCHLORIDE
     Dosage: 37.5 MG, UNK
  5. PLENISH?K [Suspect]
     Active Substance: POTASSIUM CHLORIDE
     Dosage: 600 MG, UNK
  6. URBANOL [Suspect]
     Active Substance: CLOBAZAM
     Dosage: 10 MG, UNK
  7. TRAMAZAC CO [Suspect]
     Active Substance: ACETAMINOPHEN\TRAMADOL
     Dosage: 37.5/325 MG
  8. ALDACTONE [Suspect]
     Active Substance: SPIRONOLACTONE
     Dosage: 100 MG, UNK
  9. EPLEPTIN [Suspect]
     Active Substance: GABAPENTIN
     Dosage: 400 MG, UNK

REACTIONS (1)
  - Dementia [Unknown]
